FAERS Safety Report 21062807 (Version 1)
Quarter: 2022Q3

REPORT INFORMATION
  Report Type: Spontaneous
  Country: FR (occurrence: FR)
  Receive Date: 20220711
  Receipt Date: 20220711
  Transmission Date: 20221027
  Serious: Yes (Other)
  Sender: FDA-Public Use
  Company Number: None

PATIENT
  Age: 54 Year
  Sex: Female
  Weight: 62 kg

DRUGS (8)
  1. DARZALEX [Suspect]
     Active Substance: DARATUMUMAB
     Indication: Plasma cell myeloma
     Dosage: 1800 MG A J1, J8, J15 ET J22
     Route: 065
     Dates: start: 20220415, end: 20220506
  2. VELCADE [Suspect]
     Active Substance: BORTEZOMIB
     Indication: Plasma cell myeloma
     Dosage: 2,22 MG A J1, J4, J8, J11 DE CHAQUE CYCLE, CYCLES DE 28 JOURS
     Route: 065
     Dates: start: 20220415, end: 20220425
  3. METHYLPREDNISOLONE [Suspect]
     Active Substance: METHYLPREDNISOLONE
     Indication: Plasma cell myeloma
     Dosage: SAUF LES JOURS DE CHIMIOTHERAPIE
     Route: 065
     Dates: start: 20220416, end: 20220420
  4. OXYCODONE [Suspect]
     Active Substance: OXYCODONE
     Indication: Pain
     Route: 065
     Dates: start: 20220405
  5. DEXAMETHASONE [Suspect]
     Active Substance: DEXAMETHASONE
     Indication: Plasma cell myeloma
     Dosage: 40 MG A J1, J8, J15 ET J22
     Route: 065
     Dates: start: 20220415, end: 20220506
  6. POLARAMINE [Suspect]
     Active Substance: DEXCHLORPHENIRAMINE MALEATE
     Indication: Chemotherapy side effect prophylaxis
     Dosage: 2 MG A J1, J8, J15 ET J22
     Route: 065
     Dates: start: 20220415, end: 20220506
  7. REVLIMID [Suspect]
     Active Substance: LENALIDOMIDE
     Indication: Plasma cell myeloma
     Dosage: 25 MG/J PENDANT 21 JOURS CONSECUTIFS DU CYCLE, CYCLES DE 28 JOURS
     Route: 065
     Dates: start: 20220415, end: 20220505
  8. ACETAMINOPHEN [Suspect]
     Active Substance: ACETAMINOPHEN
     Indication: Pain
     Dosage: PRISES PONCTUELLES + PRISES SYSTEMATIQUES A J1, J8, J15 ET J22
     Route: 065
     Dates: start: 202201, end: 20220613

REACTIONS (1)
  - Hepatocellular injury [Recovered/Resolved]

NARRATIVE: CASE EVENT DATE: 20220419
